FAERS Safety Report 11771252 (Version 2)
Quarter: 2015Q4

REPORT INFORMATION
  Report Type: Spontaneous
  Country: FR (occurrence: FR)
  Receive Date: 20151124
  Receipt Date: 20151214
  Transmission Date: 20160304
  Serious: Yes (Hospitalization)
  Sender: FDA-Public Use
  Company Number: FR-ACCORD-035600

PATIENT
  Age: 72 Year
  Sex: Female

DRUGS (13)
  1. FLUOROURACIL ACCORD [Suspect]
     Active Substance: FLUOROURACIL
     Indication: INVASIVE DUCTAL BREAST CARCINOMA
     Dosage: STRENGTH: 50 MG/ML?DOSE: 1 CYCLE?THERAPY DURATION: TWO ADMINISTRATIONS
     Route: 042
     Dates: start: 20150806, end: 20150827
  2. XANAX [Concomitant]
     Active Substance: ALPRAZOLAM
     Indication: PREMEDICATION
  3. FARMORUBICINE [Suspect]
     Active Substance: EPIRUBICIN HYDROCHLORIDE
     Indication: INVASIVE DUCTAL BREAST CARCINOMA
     Dosage: DOSE: 1 CYCLE??THERAPY DURATION: TWO ADMINISTRATIONS??INFUSION
     Route: 042
     Dates: start: 20150806, end: 20150827
  4. MONOCRIXO [Concomitant]
     Active Substance: TRAMADOL HYDROCHLORIDE
  5. SOLUPRED [Suspect]
     Active Substance: PREDNISOLONE
     Indication: PROPHYLAXIS OF NAUSEA AND VOMITING
     Dosage: STRENGTH: 20 MG
     Route: 048
     Dates: start: 20150827, end: 20150830
  6. MOPRAL [Concomitant]
     Active Substance: OMEPRAZOLE SODIUM
  7. EMEND [Suspect]
     Active Substance: APREPITANT
     Indication: PROPHYLAXIS OF NAUSEA AND VOMITING
     Dosage: DOSE: ONE DOSAGE FORM PER DAY
     Route: 048
     Dates: start: 20150827, end: 20150830
  8. IXPRIM [Concomitant]
     Active Substance: ACETAMINOPHEN\TRAMADOL HYDROCHLORIDE
  9. ALDACTAZINE [Concomitant]
     Active Substance: ALTHIAZIDE\SPIRONOLACTONE
  10. PRIMPERAN [Suspect]
     Active Substance: METOCLOPRAMIDE HYDROCHLORIDE
     Indication: VOMITING
     Route: 048
     Dates: start: 20150827, end: 20150904
  11. ENDOXAN [Suspect]
     Active Substance: CYCLOPHOSPHAMIDE
     Indication: INVASIVE DUCTAL BREAST CARCINOMA
     Dosage: DOSE: 1 CYCLE??THERAPY DURATION: TWO ADMINISTRATIONS
     Route: 042
     Dates: start: 20150806, end: 20150827
  12. SETOFILM [Suspect]
     Active Substance: ONDANSETRON
     Indication: PROPHYLAXIS OF NAUSEA AND VOMITING
     Dosage: DOSE: ONE DOSAGE FORM IF NEEDED
     Route: 048
     Dates: start: 20150827, end: 20150831
  13. LUMIGAN [Concomitant]
     Active Substance: BIMATOPROST

REACTIONS (5)
  - Pancytopenia [Unknown]
  - Epistaxis [Unknown]
  - Fall [Unknown]
  - Facial bones fracture [Unknown]
  - Colitis [Recovered/Resolved]

NARRATIVE: CASE EVENT DATE: 20150904
